FAERS Safety Report 9720066 (Version 1)
Quarter: 2013Q4

REPORT INFORMATION
  Report Type: Spontaneous
  Country: US (occurrence: US)
  Receive Date: 20131128
  Receipt Date: 20131128
  Transmission Date: 20140711
  Serious: Yes (Other)
  Sender: FDA-Public Use
  Company Number: US-ROCHE-1306261

PATIENT
  Age: 61 Year
  Sex: Male

DRUGS (4)
  1. PEGASYS [Suspect]
     Indication: HEPATITIS C
     Route: 065
     Dates: start: 201112
  2. PEGASYS [Suspect]
     Indication: HEPATIC CIRRHOSIS
  3. RIBAVIRIN [Suspect]
     Indication: HEPATITIS C
     Route: 065
     Dates: start: 201112
  4. RIBAVIRIN [Suspect]
     Indication: HEPATIC CIRRHOSIS

REACTIONS (2)
  - Prostate cancer [Unknown]
  - Drug ineffective [Unknown]
